FAERS Safety Report 17830432 (Version 1)
Quarter: 2020Q2

REPORT INFORMATION
  Report Type: Spontaneous
  Country: US (occurrence: US)
  Receive Date: 20200527
  Receipt Date: 20200527
  Transmission Date: 20200714
  Serious: No
  Sender: FDA-Public Use
  Company Number: US-PERRIGO-19US014527

PATIENT
  Age: 81 Year
  Sex: Female
  Weight: 77.1 kg

DRUGS (2)
  1. MOMETASONE FUROATE. [Suspect]
     Active Substance: MOMETASONE FUROATE
     Indication: PSORIASIS
     Dosage: 1 APPLICATION, NIGHTLY, FOR 2 WEEKS
     Route: 061
     Dates: start: 201911, end: 201911
  2. MULTIVITAMINS, PLAIN [Concomitant]
     Active Substance: VITAMINS
     Indication: SUPPLEMENTATION THERAPY
     Dosage: UNK
     Route: 065
     Dates: start: 201911

REACTIONS (10)
  - Application site dryness [Not Recovered/Not Resolved]
  - Application site induration [Not Recovered/Not Resolved]
  - Pruritus [Not Recovered/Not Resolved]
  - Pain [Not Recovered/Not Resolved]
  - Chemical burn [Not Recovered/Not Resolved]
  - Papule [Not Recovered/Not Resolved]
  - Alopecia [Not Recovered/Not Resolved]
  - Application site paraesthesia [Recovered/Resolved]
  - Application site exfoliation [Not Recovered/Not Resolved]
  - Drug ineffective [Unknown]

NARRATIVE: CASE EVENT DATE: 201911
